FAERS Safety Report 20860772 (Version 1)
Quarter: 2022Q2

REPORT INFORMATION
  Report Type: Spontaneous
  Country: US (occurrence: US)
  Receive Date: 20220523
  Receipt Date: 20220523
  Transmission Date: 20220721
  Serious: No
  Sender: FDA-Public Use
  Company Number: US-KVK-TECH, INC-20220100008

PATIENT

DRUGS (7)
  1. METHYLPHENIDATE HYDROCHLORIDE [Suspect]
     Active Substance: METHYLPHENIDATE HYDROCHLORIDE
     Indication: Attention deficit hyperactivity disorder
     Dosage: 5 MILLIGRAM
     Dates: start: 201908
  2. METHYLPHENIDATE HYDROCHLORIDE [Suspect]
     Active Substance: METHYLPHENIDATE HYDROCHLORIDE
     Dosage: 10 MILLIGRAM
     Dates: start: 2020
  3. METHYLPHENIDATE HYDROCHLORIDE [Suspect]
     Active Substance: METHYLPHENIDATE HYDROCHLORIDE
     Dosage: TAKES A TABLET AND A HALF IN THE MORNING AND A TABLET AND A HALF AT 12:20, BID
  4. MOTRIN [Concomitant]
     Active Substance: IBUPROFEN
     Indication: Illness
  5. TYLENOL [Concomitant]
     Active Substance: ACETAMINOPHEN
     Indication: Illness
  6. ZYRTEC [Concomitant]
     Active Substance: CETIRIZINE HYDROCHLORIDE
     Indication: Seasonal allergy
  7. VITAMINS NOS [Concomitant]
     Active Substance: VITAMINS
     Indication: Product used for unknown indication
     Dosage: UNK UNK, BID

REACTIONS (2)
  - Psychomotor hyperactivity [Unknown]
  - Wrong technique in product usage process [Unknown]
